FAERS Safety Report 10374874 (Version 2)
Quarter: 2014Q4

REPORT INFORMATION
  Report Type: Spontaneous
  Country: US (occurrence: US)
  Receive Date: 20140811
  Receipt Date: 20141102
  Transmission Date: 20150528
  Serious: No
  Sender: FDA-Public Use
  Company Number: US-009507513-1408USA004746

PATIENT
  Age: 57 Year
  Sex: Female
  Weight: 113.38 kg

DRUGS (2)
  1. OXYTROL FOR WOMEN [Suspect]
     Active Substance: OXYBUTYNIN
     Indication: HYPERTONIC BLADDER
     Dosage: UNK, UNKNOWN
     Route: 062
     Dates: start: 20140915, end: 20140924
  2. INSULIN [Concomitant]
     Active Substance: INSULIN NOS
     Indication: DIABETES MELLITUS
     Dosage: UNK, UNKNOWN

REACTIONS (6)
  - Application site erythema [Recovered/Resolved]
  - Product use issue [Unknown]
  - Application site rash [Recovered/Resolved]
  - Application site discharge [Recovered/Resolved]
  - Application site odour [Unknown]
  - Application site pruritus [Unknown]

NARRATIVE: CASE EVENT DATE: 201409
